FAERS Safety Report 5571172-0 (Version None)
Quarter: 2007Q4

REPORT INFORMATION
  Report Type: 
  Country: None (occurrence: None)
  Receive Date: 20071221
  Receipt Date: 20061213
  Transmission Date: 20080405
  Serious: No
  Sender: FDA-Public Use
  Company Number: A0631652A

PATIENT
  Sex: Female

DRUGS (4)
  1. FLONASE [Suspect]
  2. NASONEX [Suspect]
     Route: 045
  3. AFRIN [Suspect]
     Route: 045
  4. VANCENASE [Concomitant]
     Route: 045

REACTIONS (1)
  - DRUG INEFFECTIVE [None]
